FAERS Safety Report 7481497-X (Version None)
Quarter: 2011Q2

REPORT INFORMATION
  Report Type: 
  Country: None (occurrence: None)
  Receive Date: 20110516
  Receipt Date: 20110505
  Transmission Date: 20111010
  Serious: Yes (Hospitalization)
  Sender: FDA-Public Use
  Company Number: BR-ASTRAZENECA-2011SE26752

PATIENT
  Age: 62 Year
  Sex: Female
  Weight: 79 kg

DRUGS (8)
  1. ATENOLOL [Suspect]
     Indication: HYPERTENSION
     Route: 048
     Dates: start: 20060101, end: 20090101
  2. NEXIUM [Suspect]
     Route: 048
     Dates: start: 20110201
  3. LIPITOR [Concomitant]
     Route: 048
     Dates: start: 20090101
  4. ACTOS [Suspect]
     Indication: DIABETES MELLITUS
     Route: 048
     Dates: start: 20080101, end: 20110401
  5. ATENOLOL [Suspect]
     Route: 048
     Dates: start: 20090101, end: 20110201
  6. SOMALGIN [Suspect]
     Route: 048
     Dates: start: 20090101, end: 20101201
  7. NEXIUM [Suspect]
     Indication: INTESTINAL HAEMORRHAGE
     Route: 048
     Dates: start: 20090101
  8. PLAVIX [Concomitant]
     Route: 048
     Dates: start: 20090101

REACTIONS (8)
  - INTESTINAL HAEMORRHAGE [None]
  - CHEST PAIN [None]
  - DRUG PRESCRIBING ERROR [None]
  - DRUG DOSE OMISSION [None]
  - ERUCTATION [None]
  - GENERALISED OEDEMA [None]
  - DIABETES MELLITUS INADEQUATE CONTROL [None]
  - STENT PLACEMENT [None]
